FAERS Safety Report 13825277 (Version 1)
Quarter: 2017Q3

REPORT INFORMATION
  Report Type: Spontaneous
  Country: PT (occurrence: PT)
  Receive Date: 20170802
  Receipt Date: 20170802
  Transmission Date: 20171127
  Serious: Yes (Other)
  Sender: FDA-Public Use
  Company Number: PT-TEVA-791169ISR

PATIENT
  Age: 23 Year
  Sex: Male

DRUGS (2)
  1. IBUPROFENO RATIOPHARM 600 MG COMPRIMIDOS REVESTIDOS [Suspect]
     Active Substance: IBUPROFEN
     Indication: LOCALISED INFECTION
     Route: 048
  2. CIPROFLOXACINA [Suspect]
     Active Substance: CIPROFLOXACIN
     Indication: LOCALISED INFECTION

REACTIONS (3)
  - Vomiting [Unknown]
  - Cheilitis [Recovering/Resolving]
  - Lip haemorrhage [Recovering/Resolving]
